FAERS Safety Report 18535847 (Version 1)
Quarter: 2020Q4

REPORT INFORMATION
  Report Type: Spontaneous
  Country: US (occurrence: US)
  Receive Date: 20201123
  Receipt Date: 20201123
  Transmission Date: 20210114
  Serious: No
  Sender: FDA-Public Use
  Company Number: US-ROCHE-2553795

PATIENT
  Age: 11 Year
  Sex: Male
  Weight: 41.31 kg

DRUGS (1)
  1. TAMIFLU [Suspect]
     Active Substance: OSELTAMIVIR PHOSPHATE
     Indication: INFLUENZA
     Route: 048
     Dates: start: 20200126, end: 20200127

REACTIONS (2)
  - Hallucination [Recovered/Resolved]
  - Sleep terror [Unknown]

NARRATIVE: CASE EVENT DATE: 20200209
